FAERS Safety Report 18647475 (Version 1)
Quarter: 2020Q4

REPORT INFORMATION
  Report Type: Spontaneous
  Country: DK (occurrence: DK)
  Receive Date: 20201222
  Receipt Date: 20201222
  Transmission Date: 20210114
  Serious: Yes (Hospitalization, Congenital Anomaly, Other)
  Sender: FDA-Public Use
  Company Number: DK-MICRO LABS LIMITED-ML2020-03787

PATIENT
  Sex: Female

DRUGS (10)
  1. MACITENTAN [Suspect]
     Active Substance: MACITENTAN
     Route: 064
  2. AZATHIOPRINE. [Suspect]
     Active Substance: AZATHIOPRINE
     Route: 064
  3. HYDROXYCHLOROQUINE [Suspect]
     Active Substance: HYDROXYCHLOROQUINE
     Route: 064
  4. ILOPROST. [Suspect]
     Active Substance: ILOPROST
     Route: 064
  5. SILDENAFIL. [Suspect]
     Active Substance: SILDENAFIL
     Route: 064
  6. APIXABAN [Suspect]
     Active Substance: APIXABAN
     Route: 064
  7. ATOSIBAN [Suspect]
     Active Substance: ATOSIBAN
     Route: 064
  8. PREDNISOLONE. [Suspect]
     Active Substance: PREDNISOLONE
     Route: 064
  9. TINZAPARIN [Suspect]
     Active Substance: TINZAPARIN
     Route: 064
  10. TREPROSTINIL. [Suspect]
     Active Substance: TREPROSTINIL
     Route: 064

REACTIONS (13)
  - Drug interaction [Unknown]
  - Multiple epiphyseal dysplasia [Unknown]
  - Premature baby [Unknown]
  - Neonatal respiratory distress syndrome [Unknown]
  - Skeletal dysplasia [Unknown]
  - Congenital musculoskeletal anomaly [Unknown]
  - Bradycardia [Unknown]
  - Foetal growth restriction [Unknown]
  - Cyanosis [Unknown]
  - Posture abnormal [Unknown]
  - Hypotonia [Unknown]
  - Chondrodystrophy [Unknown]
  - Brachydactyly [Unknown]
